FAERS Safety Report 6250179-4 (Version None)
Quarter: 2009Q2

REPORT INFORMATION
  Report Type: 
  Country: None (occurrence: None)
  Receive Date: 20090626
  Receipt Date: 20090612
  Transmission Date: 20091009
  Serious: Yes (Other)
  Sender: FDA-Public Use
  Company Number: 230834K09USA

PATIENT
  Age: 33 Year
  Sex: Female

DRUGS (17)
  1. REBIF [Suspect]
     Indication: MULTIPLE SCLEROSIS
     Dosage: 44 MCG, 3 IN 1 WEEKS, SUBCUTANEOUS
     Route: 058
     Dates: start: 20080101
  2. PROVIGIL [Concomitant]
  3. DEPO-PROVERA (MEDROXYPROGESERONE ACETATE) [Concomitant]
  4. EQUETRO [Concomitant]
  5. TOPAMAX [Concomitant]
  6. DUONEB [Concomitant]
  7. NEXIUM (ESOMEPRAZOLE MANGESIUM) [Concomitant]
  8. ALLEGRA [Concomitant]
  9. VALIUM [Concomitant]
  10. RESTORIL [Concomitant]
  11. TRAZODONE HCL [Concomitant]
  12. CELEXA [Concomitant]
  13. ADVAIR HFA [Concomitant]
  14. SINGULAIR (MONTELUKAST /01362601/) [Concomitant]
  15. BACLOFEN [Concomitant]
  16. VITAMIN B (VITAMIN B) [Concomitant]
  17. ASCORBIC ACID [Concomitant]

REACTIONS (6)
  - IMPAIRED HEALING [None]
  - INJECTION SITE HAEMATOMA [None]
  - MOUTH ULCERATION [None]
  - OPTIC NEUROPATHY [None]
  - TOOTH ABSCESS [None]
  - WEIGHT DECREASED [None]
